FAERS Safety Report 25607467 (Version 1)
Quarter: 2025Q3

REPORT INFORMATION
  Report Type: Spontaneous
  Country: US (occurrence: US)
  Receive Date: 20250725
  Receipt Date: 20250725
  Transmission Date: 20251020
  Serious: Yes (Hospitalization)
  Sender: The J.Molner Company
  Company Number: US-THE J. MOLNER COMPANY-202507000037

PATIENT

DRUGS (13)
  1. CIPROFLOXACIN [Interacting]
     Active Substance: CIPROFLOXACIN
     Indication: Cellulitis
     Route: 048
  2. CLOZAPINE [Interacting]
     Active Substance: CLOZAPINE
     Indication: Schizophrenia
     Route: 048
  3. CLOZAPINE [Interacting]
     Active Substance: CLOZAPINE
     Route: 048
  4. CLOZAPINE [Interacting]
     Active Substance: CLOZAPINE
     Route: 048
  5. ALBUTEROL SULFATE [Concomitant]
     Active Substance: ALBUTEROL SULFATE
     Indication: Chronic obstructive pulmonary disease
  6. DIVALPROEX SODIUM ER [Concomitant]
     Active Substance: DIVALPROEX SODIUM
     Indication: Seizure
     Route: 048
  7. BETAMETHASONE DIPROPIONATE [Concomitant]
     Active Substance: BETAMETHASONE DIPROPIONATE
     Indication: Dermatosis
     Route: 061
  8. CLOBETASOL [Concomitant]
     Active Substance: CLOBETASOL
     Indication: Dermatosis
     Route: 061
  9. LATANOPROST [Concomitant]
     Active Substance: LATANOPROST
     Indication: Glaucoma
  10. CHOLECALCIFEROL [Concomitant]
     Active Substance: CHOLECALCIFEROL
     Indication: Vitamin D deficiency
     Route: 048
  11. Compound Methyl Salicylate and Menthol [Concomitant]
     Indication: Analgesic therapy
     Route: 061
  12. TACROLIMUS [Concomitant]
     Active Substance: TACROLIMUS
     Indication: Dermatitis contact
     Route: 061
  13. CEPHALEXIN [Concomitant]
     Active Substance: CEPHALEXIN

REACTIONS (5)
  - Drug interaction [None]
  - Sedation [None]
  - Hypersomnia [None]
  - Fatigue [None]
  - Drug level increased [None]
